FAERS Safety Report 16052987 (Version 3)
Quarter: 2019Q2

REPORT INFORMATION
  Report Type: Report from Study
  Country: HU (occurrence: HU)
  Receive Date: 20190308
  Receipt Date: 20190401
  Transmission Date: 20190711
  Serious: Yes (Death)
  Sender: FDA-Public Use
  Company Number: HU-PFIZER INC-2019102600

PATIENT
  Age: 54 Year
  Sex: Female
  Weight: 98 kg

DRUGS (13)
  1. AXITINIB [Suspect]
     Active Substance: AXITINIB
     Indication: NON-SMALL CELL LUNG CANCER
     Dosage: 5 MG, 2X/DAY
     Route: 048
     Dates: start: 20190123, end: 20190130
  2. SPIOLTO RESPIMAT [Concomitant]
     Active Substance: OLODATEROL HYDROCHLORIDE\TIOTROPIUM BROMIDE MONOHYDRATE
     Indication: CHRONIC OBSTRUCTIVE PULMONARY DISEASE
     Dosage: 2 PUFF, 1X/DAY, FORMULATION: INHALATION
     Route: 055
     Dates: start: 2017, end: 20190228
  3. AVELUMAB [Suspect]
     Active Substance: AVELUMAB
     Indication: NON-SMALL CELL LUNG CANCER
     Dosage: 800 MG, 1X/DAY
     Route: 042
     Dates: start: 20190123, end: 20190219
  4. AXITINIB [Suspect]
     Active Substance: AXITINIB
     Dosage: 5 MG, 1X/DAY
     Route: 048
     Dates: start: 20190131, end: 20190131
  5. VALSACOR [Concomitant]
     Active Substance: VALSARTAN
     Indication: HYPERTENSION
     Dosage: 1X80 MG, (MORNING)
     Route: 048
     Dates: start: 20190126, end: 20190209
  6. VALSACOR [Concomitant]
     Active Substance: VALSARTAN
     Dosage: 2X80 MG, UNK
     Route: 048
     Dates: start: 20190210, end: 20190228
  7. CONCOR [Concomitant]
     Active Substance: BISOPROLOL FUMARATE
     Dosage: 10 MG, (EVENING)
     Dates: start: 20190129, end: 20190129
  8. AXITINIB [Suspect]
     Active Substance: AXITINIB
     Dosage: 3 MG, 2X/DAY
     Route: 048
     Dates: start: 20190206, end: 20190226
  9. ASPIRIN PROTECT [Concomitant]
     Active Substance: ASPIRIN
     Indication: THROMBOSIS PROPHYLAXIS
     Dosage: 100 MG, 1X/DAY
     Route: 048
     Dates: start: 1998, end: 20190228
  10. CONCOR [Concomitant]
     Active Substance: BISOPROLOL FUMARATE
     Indication: HYPERTENSION
     Dosage: 80 MG, 2X/DAY
     Route: 048
     Dates: start: 20190129, end: 20190228
  11. VALSACOR [Concomitant]
     Active Substance: VALSARTAN
     Dosage: 1X40 MG, (EVENING)
     Route: 048
     Dates: start: 20190129, end: 20190209
  12. AXITINIB [Suspect]
     Active Substance: AXITINIB
     Dosage: 3 MG, 1X/DAY
     Route: 048
     Dates: start: 20190227, end: 20190227
  13. ISOPTIN [VERAPAMIL HYDROCHLORIDE] [Concomitant]
     Indication: HYPERTENSION
     Dosage: 120 MG, 1X/DAY
     Route: 048
     Dates: start: 1999, end: 20190228

REACTIONS (1)
  - Neoplasm progression [Fatal]

NARRATIVE: CASE EVENT DATE: 20190228
